FAERS Safety Report 5005750-4 (Version None)
Quarter: 2006Q2

REPORT INFORMATION
  Report Type: 
  Country: None (occurrence: None)
  Receive Date: 20060518
  Receipt Date: 20060421
  Transmission Date: 20061013
  Serious: Yes (Other)
  Sender: FDA-Public Use
  Company Number: JP-BRISTOL-MYERS SQUIBB COMPANY-13354352

PATIENT
  Age: 66 Year
  Sex: Female

DRUGS (10)
  1. PARAPLATIN [Suspect]
     Indication: DIFFUSE LARGE B-CELL LYMPHOMA
     Route: 041
     Dates: start: 20051104, end: 20051107
  2. LASTET [Suspect]
     Indication: NON-HODGKIN'S LYMPHOMA
     Route: 042
     Dates: start: 20051104, end: 20051107
  3. CYTARABINE [Suspect]
     Indication: DIFFUSE LARGE B-CELL LYMPHOMA
     Route: 041
     Dates: start: 20051108, end: 20051108
  4. METHYLPREDNISOLONE [Concomitant]
     Indication: NON-HODGKIN'S LYMPHOMA
  5. MAXIPIME [Concomitant]
     Route: 042
     Dates: start: 20051113, end: 20051119
  6. ACETAMINOPHEN [Concomitant]
     Route: 048
     Dates: start: 20051116, end: 20051116
  7. NEUTROGIN [Concomitant]
     Route: 058
     Dates: start: 20051110, end: 20051118
  8. LANSOPRAZOLE [Concomitant]
     Route: 048
     Dates: start: 20050131
  9. REBAMIPIDE [Concomitant]
     Route: 048
     Dates: start: 20050131
  10. MECOBALAMIN [Concomitant]
     Route: 048
     Dates: start: 20050506

REACTIONS (5)
  - ANAEMIA [None]
  - FEBRILE NEUTROPENIA [None]
  - NEUTROPENIA [None]
  - PNEUMONIA FUNGAL [None]
  - THROMBOCYTOPENIA [None]
